FAERS Safety Report 6327808-X (Version None)
Quarter: 2009Q3

REPORT INFORMATION
  Report Type: 
  Country: None (occurrence: None)
  Receive Date: 20090824
  Receipt Date: 20090810
  Transmission Date: 20100115
  Serious: Yes (Other)
  Sender: FDA-Public Use
  Company Number: DSA_40575_2009

PATIENT
  Sex: Female
  Weight: 57.1532 kg

DRUGS (15)
  1. CARDIZEM LA [Suspect]
     Indication: HYPERTENSION
     Dosage: (120 MG QD  ORAL), (180 MG QD ORAL), (240 MG QD ORAL)
     Route: 048
     Dates: start: 20081125, end: 20090101
  2. CARDIZEM LA [Suspect]
     Indication: HYPERTENSION
     Dosage: (120 MG QD  ORAL), (180 MG QD ORAL), (240 MG QD ORAL)
     Route: 048
     Dates: start: 20090101, end: 20090601
  3. CARDIZEM LA [Suspect]
     Indication: HYPERTENSION
     Dosage: (120 MG QD  ORAL), (180 MG QD ORAL), (240 MG QD ORAL)
     Route: 048
     Dates: start: 20090602
  4. PROGRAF [Suspect]
     Indication: PROPHYLAXIS AGAINST TRANSPLANT REJECTION
     Dosage: (1.5 MG QD ORAL), (1 MG QD ORAL)
     Route: 048
     Dates: start: 20081101, end: 20090601
  5. PROGRAF [Suspect]
     Indication: PROPHYLAXIS AGAINST TRANSPLANT REJECTION
     Dosage: (1.5 MG QD ORAL), (1 MG QD ORAL)
     Route: 048
     Dates: start: 20090601
  6. IMURAN [Suspect]
     Indication: PROPHYLAXIS AGAINST TRANSPLANT REJECTION
     Dosage: (100 MG QD  ORAL), (50 MG QD ORAL)
     Route: 048
     Dates: start: 20081101, end: 20090601
  7. IMURAN [Suspect]
     Indication: PROPHYLAXIS AGAINST TRANSPLANT REJECTION
     Dosage: (100 MG QD  ORAL), (50 MG QD ORAL)
     Route: 048
     Dates: start: 20090601, end: 20090701
  8. ITRACONAZOLE [Concomitant]
  9. COLACE [Concomitant]
  10. ASPIRIN [Concomitant]
  11. MAGNESIUM OXIDE [Concomitant]
  12. CALCIUM CARBONATE W/VITAMIN D /00944201/ [Concomitant]
  13. C-VITAMIN [Concomitant]
  14. AMBIEN CR [Concomitant]
  15. OMEPRAZOLE [Concomitant]

REACTIONS (3)
  - ANAEMIA [None]
  - LEUKOPENIA [None]
  - NEUTROPENIA [None]
